FAERS Safety Report 4359137-8 (Version None)
Quarter: 2004Q2

REPORT INFORMATION
  Report Type: 
  Country: None (occurrence: None)
  Receive Date: 20040512
  Receipt Date: 20040427
  Transmission Date: 20050107
  Serious: No
  Sender: FDA-Public Use
  Company Number: 2004AP01900

PATIENT
  Age: 49 Year
  Sex: Male
  Weight: 97 kg

DRUGS (11)
  1. ROSUVASTATIN [Suspect]
     Indication: HYPERLIPIDAEMIA
     Dosage: 10 MG DAILY PO
     Route: 048
     Dates: start: 20040102, end: 20040324
  2. ASPIRIN [Concomitant]
  3. CARVEDILOL [Concomitant]
  4. FUROSEMIDE [Concomitant]
  5. OXTRIPHYLLINE [Concomitant]
  6. VITAMIN B COMPLEX CAP [Concomitant]
  7. MGO [Concomitant]
  8. AMLODIPINE [Concomitant]
  9. GLIPIZIDE [Concomitant]
  10. ISOSORBIDE MONONITRATE [Concomitant]
  11. FOSINOPRIL SODIUM [Concomitant]

REACTIONS (2)
  - CHRONIC HEPATITIS [None]
  - HEPATITIS B SURFACE ANTIGEN POSITIVE [None]
